FAERS Safety Report 13281308 (Version 1)
Quarter: 2017Q1

REPORT INFORMATION
  Report Type: Spontaneous
  Country: US (occurrence: US)
  Receive Date: 20170228
  Receipt Date: 20170228
  Transmission Date: 20170428
  Serious: Yes (Life-Threatening, Hospitalization)
  Sender: FDA-Public Use
  Company Number: None

PATIENT
  Age: 60 Year
  Sex: Female
  Weight: 76 kg

DRUGS (16)
  1. PREDNISONE OPHTHALMIC SOLUTION [Concomitant]
  2. PEMBROLIZUMAB. [Suspect]
     Active Substance: PEMBROLIZUMAB
     Indication: METASTATIC MALIGNANT MELANOMA
     Dosage: OTHER FREQUENCY:EVERY 3 WEEKS;?
     Route: 042
     Dates: start: 20151002, end: 20160323
  3. COENZYME Q10 [Concomitant]
     Active Substance: UBIDECARENONE
  4. HYDROXYCHLOROQUINE [Concomitant]
     Active Substance: HYDROXYCHLOROQUINE
  5. LINAGLIPTIN [Concomitant]
     Active Substance: LINAGLIPTIN
  6. LOPERAMIDE [Concomitant]
     Active Substance: LOPERAMIDE
  7. ONDANSETRON [Concomitant]
     Active Substance: ONDANSETRON
  8. HYDROCORTISONE. [Concomitant]
     Active Substance: HYDROCORTISONE
  9. LISINOPRIL. [Concomitant]
     Active Substance: LISINOPRIL
  10. MULTIVITAMIN [Concomitant]
     Active Substance: VITAMINS
  11. TRAMADOL. [Concomitant]
     Active Substance: TRAMADOL
  12. ACETAMINOPHEN. [Concomitant]
     Active Substance: ACETAMINOPHEN
  13. SIMVASTATIN. [Concomitant]
     Active Substance: SIMVASTATIN
  14. ALPRAZOLAM. [Concomitant]
     Active Substance: ALPRAZOLAM
  15. CHOLECALCIFEROL [Concomitant]
     Active Substance: CHOLECALCIFEROL
  16. CLOPIDOGREL [Concomitant]
     Active Substance: CLOPIDOGREL BISULFATE

REACTIONS (10)
  - Diarrhoea [None]
  - Upper gastrointestinal haemorrhage [None]
  - Enteritis [None]
  - Malnutrition [None]
  - Obstruction gastric [None]
  - Vomiting [None]
  - Gastrointestinal ulcer [None]
  - Gastritis [None]
  - Nausea [None]
  - Duodenitis [None]

NARRATIVE: CASE EVENT DATE: 20160429
